FAERS Safety Report 23474918 (Version 1)
Quarter: 2024Q1

REPORT INFORMATION
  Report Type: Report from Study
  Country: US (occurrence: US)
  Receive Date: 20240204
  Receipt Date: 20240204
  Transmission Date: 20240410
  Serious: Yes (Other)
  Sender: FDA-Public Use
  Company Number: US-EXELIXIS-CABO-23066774

PATIENT
  Sex: Female

DRUGS (1)
  1. CABOMETYX [Suspect]
     Active Substance: CABOZANTINIB S-MALATE
     Indication: Thyroid cancer
     Dosage: 60 MG

REACTIONS (9)
  - Dehydration [Unknown]
  - Head injury [Unknown]
  - Rib fracture [Unknown]
  - Loss of consciousness [Unknown]
  - Syncope [Unknown]
  - Blood pressure increased [Recovered/Resolved]
  - Dysphonia [Unknown]
  - Cough [Unknown]
  - Stomatitis [Unknown]
